FAERS Safety Report 22148230 (Version 1)
Quarter: 2023Q1

REPORT INFORMATION
  Report Type: Spontaneous
  Country: US (occurrence: None)
  Receive Date: 20230328
  Receipt Date: 20230328
  Transmission Date: 20230418
  Serious: No
  Sender: FDA-Public Use
  Company Number: None

PATIENT
  Age: 52 Year
  Sex: Female
  Weight: 55.79 kg

DRUGS (1)
  1. ODOMZO [Suspect]
     Active Substance: SONIDEGIB
     Indication: Basal cell carcinoma
     Dosage: TAKE CAPSULE BY MOUTH DAILY ON EMPTY STOMACH, AT LEAST 1 HOUR BEFORE OR 2 HOURS AFTER MEAL AS
     Route: 048
     Dates: start: 202302

REACTIONS (1)
  - Blood glucose increased [None]
